FAERS Safety Report 10880953 (Version 1)
Quarter: 2015Q1

REPORT INFORMATION
  Report Type: Spontaneous
  Country: US (occurrence: US)
  Receive Date: 20150303
  Receipt Date: 20150303
  Transmission Date: 20150721
  Serious: No
  Sender: FDA-Public Use
  Company Number: US-B.I. PHARMACEUTICALS,INC./RIDGEFIELD-2015-BI-09032BP

PATIENT
  Sex: Female

DRUGS (2)
  1. MOBIC [Suspect]
     Active Substance: MELOXICAM
     Indication: ARTHRITIS
     Dosage: 15 MG
     Route: 065
  2. CELEBREX [Concomitant]
     Active Substance: CELECOXIB
     Indication: ARTHRITIS
     Dosage: 15 MG
     Route: 065

REACTIONS (1)
  - Drug ineffective [Unknown]
